FAERS Safety Report 8900643 (Version 4)
Quarter: 2013Q1

REPORT INFORMATION
  Report Type: Report from Study
  Country: BR (occurrence: BR)
  Receive Date: 20121109
  Receipt Date: 20130122
  Transmission Date: 20140127
  Serious: Yes (Death, Hospitalization)
  Sender: FDA-Public Use
  Company Number: BR-ROCHE-1149957

PATIENT
  Age: 84 Year
  Sex: Female
  Weight: 62 kg

DRUGS (10)
  1. TRASTUZUMAB [Suspect]
     Indication: BREAST CANCER METASTATIC
     Dosage: LAST DOSE PRIOR TO SAE:19/OCT/2012, DOSE:372 MG
     Route: 042
     Dates: start: 20120209
  2. DOCETAXEL [Suspect]
     Indication: BREAST CANCER METASTATIC
     Dosage: LAST DOSE PRIOR TO SAE:19/OCT/2012, DOSE:120.7 MG
     Route: 042
     Dates: start: 20120209
  3. OMEPRAZOLE [Concomitant]
     Route: 065
     Dates: start: 20120209
  4. DEXAMETHASON [Concomitant]
     Route: 065
     Dates: start: 20120209
  5. ONDANSETRON [Concomitant]
     Route: 065
     Dates: start: 20120209
  6. DIPHENHYDRAMINE [Concomitant]
     Route: 065
     Dates: start: 20120209
  7. RANITIDINE [Concomitant]
     Route: 065
     Dates: start: 20120209
  8. MODURETIC [Concomitant]
     Indication: HYPERTENSION
  9. B COMPLEX [Concomitant]
     Indication: NEUROPATHY PERIPHERAL
     Route: 065
     Dates: start: 20120614
  10. LOPERAMIDE [Concomitant]
     Indication: DIARRHOEA
     Route: 065
     Dates: start: 20121003, end: 20121003

REACTIONS (2)
  - Leukopenia [Fatal]
  - Cellulitis [Fatal]
